FAERS Safety Report 4816152-5 (Version None)
Quarter: 2005Q4

REPORT INFORMATION
  Report Type: 
  Country: None (occurrence: None)
  Receive Date: 20051026
  Receipt Date: 20051007
  Transmission Date: 20060501
  Serious: Yes (Other)
  Sender: FDA-Public Use
  Company Number: USA020211201

PATIENT
  Age: 65 Year
  Sex: Female

DRUGS (1)
  1. HUMALOG MIX 75/25 [Suspect]
     Indication: DIABETES MELLITUS
     Dosage: 64 U/DAY
     Dates: start: 20000101

REACTIONS (15)
  - BLOOD GLUCOSE INCREASED [None]
  - CATARACT [None]
  - EYE HAEMORRHAGE [None]
  - HYPOAESTHESIA [None]
  - LEG AMPUTATION [None]
  - LOSS OF CONSCIOUSNESS [None]
  - NIGHT SWEATS [None]
  - OCULAR NEOPLASM [None]
  - PAIN [None]
  - PARAESTHESIA [None]
  - PHARMACEUTICAL PRODUCT COMPLAINT [None]
  - PHOTOPHOBIA [None]
  - VISION BLURRED [None]
  - VISUAL BRIGHTNESS [None]
  - VITREOUS FLOATERS [None]
